FAERS Safety Report 11555895 (Version 1)
Quarter: 2015Q3

REPORT INFORMATION
  Report Type: Report from Study
  Country: US (occurrence: US)
  Receive Date: 20150925
  Receipt Date: 20150925
  Transmission Date: 20151125
  Serious: Yes (Hospitalization, Other)
  Sender: FDA-Public Use
  Company Number: US-BAYER-2015-037139

PATIENT
  Age: 64 Year
  Sex: Male

DRUGS (6)
  1. NEXAVAR [Suspect]
     Active Substance: SORAFENIB
     Indication: HEPATOCELLULAR CARCINOMA
     Dosage: 400 MG BID
     Route: 048
     Dates: start: 20150117
  2. MORPHINE [Concomitant]
     Active Substance: MORPHINE
  3. NEXAVAR [Suspect]
     Active Substance: SORAFENIB
     Indication: HEPATOCELLULAR CARCINOMA
     Dosage: 600 MG, 2AM 1 PM
     Route: 048
     Dates: start: 20150518, end: 20150901
  4. NEXAVAR [Suspect]
     Active Substance: SORAFENIB
     Indication: HEPATOCELLULAR CARCINOMA
     Dosage: 400 MG, BID
     Route: 048
     Dates: start: 20150225
  5. NEXAVAR [Suspect]
     Active Substance: SORAFENIB
     Indication: HEPATOCELLULAR CARCINOMA
     Dosage: 400 MG, BID
     Route: 048
     Dates: start: 20150407, end: 20150501
  6. NEXAVAR [Suspect]
     Active Substance: SORAFENIB
     Indication: HEPATOCELLULAR CARCINOMA
     Dosage: UNK
     Dates: start: 20150101

REACTIONS (15)
  - Cellulitis [Recovered/Resolved]
  - Ascites [Not Recovered/Not Resolved]
  - Device related infection [Recovered/Resolved]
  - Abdominal pain [None]
  - Pneumonia [Recovered/Resolved]
  - Vomiting [Unknown]
  - Headache [None]
  - Staphylococcal infection [Recovered/Resolved]
  - Hospitalisation [None]
  - Lung disorder [Not Recovered/Not Resolved]
  - Nausea [None]
  - Neoplasm [Not Recovered/Not Resolved]
  - Urine output decreased [Not Recovered/Not Resolved]
  - Nausea [None]
  - Abdominal pain [Recovering/Resolving]

NARRATIVE: CASE EVENT DATE: 20150226
